FAERS Safety Report 6736109-7 (Version None)
Quarter: 2010Q2

REPORT INFORMATION
  Report Type: 
  Country: None (occurrence: None)
  Receive Date: 20100521
  Receipt Date: 20100512
  Transmission Date: 20101027
  Serious: Yes (Other)
  Sender: FDA-Public Use
  Company Number: CA-ROCHE-702244

PATIENT
  Sex: Female
  Weight: 65 kg

DRUGS (4)
  1. BEVACIZUMAB [Suspect]
     Route: 042
     Dates: start: 20100203, end: 20100507
  2. BEVACIZUMAB [Suspect]
     Dosage: FORM: INFUSIONS
     Route: 042
     Dates: start: 20100507
  3. CAPECITABINE [Suspect]
     Dosage: FREQUENCY: 14 DAYS ON FOLLOWED BY 7 DAYS REST. FORM: INFUSIONS
     Route: 042
     Dates: start: 20100201, end: 20100413
  4. TAXOL [Suspect]
     Dosage: FORM: INFUSIONS
     Route: 065
     Dates: start: 20100423

REACTIONS (1)
  - TUMOUR HAEMORRHAGE [None]
